FAERS Safety Report 14681686 (Version 2)
Quarter: 2018Q2

REPORT INFORMATION
  Report Type: Spontaneous
  Country: GB (occurrence: GB)
  Receive Date: 20180326
  Receipt Date: 20180423
  Transmission Date: 20180711
  Serious: No
  Sender: FDA-Public Use
  Company Number: GB-PFIZER INC-2018115691

PATIENT
  Age: 11 Year
  Sex: Male

DRUGS (1)
  1. DOPAMINE HCL [Suspect]
     Active Substance: DOPAMINE HYDROCHLORIDE
     Dosage: 80MG UNIT DOSE IN 5% DEXTROSE SOLUTION
     Route: 042
     Dates: start: 20160728

REACTIONS (6)
  - Induration [Recovered/Resolved]
  - Administration site extravasation [Recovered/Resolved]
  - Pallor [Recovered/Resolved]
  - Erythema [Recovered/Resolved]
  - Infusion site phlebitis [Unknown]
  - Peripheral swelling [Recovered/Resolved]

NARRATIVE: CASE EVENT DATE: 20160728
